FAERS Safety Report 9311383 (Version 1)
Quarter: 2013Q2

REPORT INFORMATION
  Report Type: Spontaneous
  Country: US (occurrence: US)
  Receive Date: 20130528
  Receipt Date: 20130528
  Transmission Date: 20140414
  Serious: Yes (Other)
  Sender: FDA-Public Use
  Company Number: US-BRISTOL-MYERS SQUIBB COMPANY-18910430

PATIENT
  Age: 68 Year
  Sex: Female

DRUGS (1)
  1. ORENCIA FOR INJ [Suspect]
     Route: 042

REACTIONS (4)
  - Tracheal mass [Unknown]
  - Vocal cord paralysis [Unknown]
  - Oropharyngeal pain [Unknown]
  - Drug ineffective [Unknown]
